FAERS Safety Report 6096959-X (Version None)
Quarter: 2009Q1

REPORT INFORMATION
  Report Type: 
  Country: None (occurrence: None)
  Receive Date: 20090225
  Receipt Date: 20090225
  Transmission Date: 20090719
  Serious: Yes (Hospitalization)
  Sender: FDA-Public Use
  Company Number: None

PATIENT
  Age: 59 Year
  Sex: Male
  Weight: 59.4212 kg

DRUGS (2)
  1. BEVACIZUMAB-10MG/KG GENENTECH [Suspect]
     Dosage: 2200MG IV
     Route: 042
  2. IL-2-18X10(6)/SQ METER/BSA X 5 DAYS- NOVARTIS [Suspect]
     Dosage: 6MILLION UNITS Q 24 HRS IV
     Route: 042

REACTIONS (3)
  - ACUTE HEPATIC FAILURE [None]
  - OEDEMA PERIPHERAL [None]
  - WEIGHT INCREASED [None]
